FAERS Safety Report 16241992 (Version 1)
Quarter: 2019Q2

REPORT INFORMATION
  Report Type: Spontaneous
  Country: JP (occurrence: JP)
  Receive Date: 20190426
  Receipt Date: 20190426
  Transmission Date: 20190711
  Serious: Yes (Hospitalization, Other)
  Sender: FDA-Public Use
  Company Number: JP-SA-2019SA060317

PATIENT

DRUGS (1)
  1. RENAGEL [Suspect]
     Active Substance: SEVELAMER HYDROCHLORIDE
     Dosage: UNK
     Route: 048

REACTIONS (2)
  - Off label use [Unknown]
  - Cellulitis [Recovered/Resolved]
